FAERS Safety Report 25940054 (Version 2)
Quarter: 2025Q4

REPORT INFORMATION
  Report Type: Report from Study
  Country: US (occurrence: US)
  Receive Date: 20251020
  Receipt Date: 20251119
  Transmission Date: 20260118
  Serious: Yes (Hospitalization, Other)
  Sender: ABBVIE
  Company Number: US-ABBVIE-6499998

PATIENT
  Age: 74 Year
  Sex: Female

DRUGS (2)
  1. RINVOQ [Suspect]
     Active Substance: UPADACITINIB
     Indication: Psoriatic arthropathy
     Route: 048
     Dates: start: 20250814
  2. RINVOQ [Suspect]
     Active Substance: UPADACITINIB
     Indication: Psoriatic arthropathy
     Route: 048
     Dates: start: 20250616

REACTIONS (3)
  - Knee arthroplasty [Unknown]
  - Blood cholesterol increased [Not Recovered/Not Resolved]
  - Blood iron decreased [Recovering/Resolving]

NARRATIVE: CASE EVENT DATE: 20250101
